FAERS Safety Report 5652071-2 (Version None)
Quarter: 2008Q1

REPORT INFORMATION
  Report Type: 
  Country: None (occurrence: None)
  Receive Date: 20080304
  Receipt Date: 20080226
  Transmission Date: 20080703
  Serious: No
  Sender: FDA-Public Use
  Company Number: 08H-087-0313772-00

PATIENT
  Age: 1 Year
  Sex: Female
  Weight: 9.6 kg

DRUGS (9)
  1. PRECEDEX [Suspect]
     Indication: SEDATION
     Dosage: 0.4 - 0.7 MCG/KG/HR, INTRAVENOUS
     Route: 042
     Dates: start: 20080109, end: 20080109
  2. KETALAR [Concomitant]
  3. DORMICUM (NITRAZEPAM) [Concomitant]
  4. SEVOFLURANE [Concomitant]
  5. MORPHINE [Concomitant]
  6. PANCURONIUM BROMIDE [Concomitant]
  7. ULTIVA [Concomitant]
  8. MILLISROL (GLYCERYL TRINITRATE) [Concomitant]
  9. OPYSTAN (PETHIDINE HYDROCHLORIDE) [Concomitant]

REACTIONS (5)
  - BRADYCARDIA [None]
  - LOSS OF CONSCIOUSNESS [None]
  - PALLOR [None]
  - SINOATRIAL BLOCK [None]
  - SINUS ARREST [None]
